FAERS Safety Report 9955622 (Version 1)
Quarter: 2014Q1

REPORT INFORMATION
  Report Type: Report from Study
  Country: US (occurrence: US)
  Receive Date: 20140304
  Receipt Date: 20140304
  Transmission Date: 20141002
  Serious: No
  Sender: FDA-Public Use
  Company Number: US-ABBVIE-13P-163-1073867-00

PATIENT
  Age: 54 Year
  Sex: Male

DRUGS (9)
  1. HUMIRA [Suspect]
     Indication: CROHN^S DISEASE
     Dates: start: 20130209
  2. XANAX [Concomitant]
     Indication: ANXIETY
     Dosage: AS NEEDED
  3. VITAMIN D2 [Concomitant]
     Indication: PRODUCT USED FOR UNKNOWN INDICATION
     Dosage: 1-2 ONCE A WEEK DAILY SUPPLEMENT
  4. VITAMIN C + ZINK [Concomitant]
     Indication: PRODUCT USED FOR UNKNOWN INDICATION
     Dosage: DAILY SUPPLEMENT
  5. B12 [Concomitant]
     Indication: PRODUCT USED FOR UNKNOWN INDICATION
     Dosage: 1000 MG DAILY SUPPLEMENT
  6. METOPROLOL TARTRATE [Concomitant]
     Indication: BLOOD PRESSURE
  7. CITALOPRAM HBR [Concomitant]
     Indication: DEPRESSION
     Dosage: 20 MG DAILY
  8. ASMANEX [Concomitant]
     Indication: ASTHMA
     Dosage: 1 PUFF DAILY
  9. PROAIR [Concomitant]
     Indication: ASTHMA
     Dosage: AS NEEDED

REACTIONS (5)
  - Feeling abnormal [Unknown]
  - Tremor [Recovered/Resolved]
  - Fatigue [Recovered/Resolved]
  - Tension [Recovered/Resolved]
  - Irritability [Unknown]
